FAERS Safety Report 15819403 (Version 7)
Quarter: 2019Q2

REPORT INFORMATION
  Report Type: Report from Study
  Country: US (occurrence: US)
  Receive Date: 20190114
  Receipt Date: 20190527
  Transmission Date: 20190711
  Serious: Yes (Hospitalization)
  Sender: FDA-Public Use
  Company Number: US-ROCHE-2242894

PATIENT
  Age: 70 Year
  Sex: Male
  Weight: 96.2 kg

DRUGS (58)
  1. OBINUTUZUMAB. [Suspect]
     Active Substance: OBINUTUZUMAB
     Indication: B-CELL LYMPHOMA
     Dosage: CYCLE 1, DAY 1 OBINUTUZUMAB 100 MG AND CYCLE 1, DAY 2 OBINUTUZUMAB 900 MG FOR TOTAL DOSE OF 1000 MG
     Route: 042
     Dates: start: 20180712
  2. BENDAMUSTINE [Suspect]
     Active Substance: BENDAMUSTINE
     Indication: B-CELL LYMPHOMA
     Dosage: 900 MG/M2, ?LAST DOSE PRIOR TO SAE^S 07/DEC/2018
     Route: 042
     Dates: start: 20180712
  3. ATORVASTATIN [Concomitant]
     Active Substance: ATORVASTATIN
  4. PLAVIX [Concomitant]
     Active Substance: CLOPIDOGREL BISULFATE
     Route: 048
     Dates: start: 20190402, end: 20190402
  5. PEPCID [Concomitant]
     Active Substance: FAMOTIDINE
     Route: 048
  6. ROBITUSSIN (GUAIFENESIN) [Concomitant]
     Active Substance: GUAIFENESIN
     Route: 048
  7. ALBUTEROL;IPRATROPIUM [Concomitant]
     Route: 065
  8. BREO ELLIPTA [Concomitant]
     Active Substance: FLUTICASONE FUROATE\VILANTEROL TRIFENATATE
     Indication: CHRONIC OBSTRUCTIVE PULMONARY DISEASE
     Dosage: 100-25 MCG?1 PUFF
     Route: 048
  9. DUONEB [Concomitant]
     Active Substance: ALBUTEROL SULFATE\IPRATROPIUM BROMIDE
     Indication: DYSPNOEA
  10. ELAVIL [Concomitant]
     Active Substance: AMITRIPTYLINE HYDROCHLORIDE
     Dosage: NIGHTLY
     Route: 048
  11. DELTASONE [PREDNISONE] [Concomitant]
     Dosage: 1.5 TABLETS?30 MG DAILYX3 DAYS THEN 20 MGDAILY X 3 DAYS
     Route: 065
  12. COENZYME Q10 [Concomitant]
     Active Substance: UBIDECARENONE
     Route: 048
  13. GUAIFENESIN. [Concomitant]
     Active Substance: GUAIFENESIN
     Route: 048
  14. MELOXICAM. [Concomitant]
     Active Substance: MELOXICAM
     Indication: ARTHRITIS
     Route: 048
  15. HUMALOG [Concomitant]
     Active Substance: INSULIN LISPRO
     Dosage: 100 UNIT
     Route: 065
  16. ZYLOPRIM [Concomitant]
     Active Substance: ALLOPURINOL
     Dosage: EVERY MORNING
     Route: 048
     Dates: start: 20190402
  17. DEXTROSE. [Concomitant]
     Active Substance: DEXTROSE
     Indication: PROPHYLAXIS
     Dosage: AS NEEDED
     Route: 042
  18. DEXTROSE. [Concomitant]
     Active Substance: DEXTROSE
     Dosage: AS NEEDED?5% IN WATER
     Route: 042
  19. ASPIRIN EC [Concomitant]
     Active Substance: ASPIRIN
     Route: 048
  20. CELEBREX [Concomitant]
     Active Substance: CELECOXIB
     Route: 065
  21. NOVOLOG [Concomitant]
     Active Substance: INSULIN ASPART
     Dosage: PEN GIVEN DURING MEALS?DOSE 0 TO 6 UNITS
     Route: 058
  22. LIDOCAINE. [Concomitant]
     Active Substance: LIDOCAINE
     Route: 065
  23. SENNOSIDES. [Concomitant]
     Active Substance: SENNOSIDES
  24. CLINPRO 5000 [Concomitant]
     Active Substance: SODIUM FLUORIDE
     Dosage: PLACE ONTO TEETH
     Route: 065
  25. ROBITUSSIN AC [CODEINE PHOSPHATE;GUAIFENESIN] [Concomitant]
     Indication: COUGH
  26. ALLOPURINOL. [Concomitant]
     Active Substance: ALLOPURINOL
     Route: 048
  27. LACTATED RINGERS SOLUTION [Concomitant]
     Active Substance: CALCIUM CHLORIDE\POTASSIUM CHLORIDE\SODIUM CHLORIDE\SODIUM LACTATE
     Dosage: 84 ML/HOUR
     Route: 042
  28. FLONASE [Concomitant]
     Active Substance: FLUTICASONE PROPIONATE
     Dosage: 50 MCG?2 SPRAYS EACH NARE
     Route: 045
  29. ASPIRIN EC [Concomitant]
     Active Substance: ASPIRIN
     Route: 048
     Dates: start: 20190402
  30. NEURONTIN [Concomitant]
     Active Substance: GABAPENTIN
     Route: 048
  31. TYLENOL [Concomitant]
     Active Substance: ACETAMINOPHEN
     Indication: PAIN
     Dosage: AS NEEDED
     Route: 048
  32. LIPITOR [Concomitant]
     Active Substance: ATORVASTATIN CALCIUM
     Route: 048
     Dates: start: 20190402, end: 20190402
  33. GLUCAGEN [GLUCAGON] [Concomitant]
     Indication: PROPHYLAXIS
     Dosage: ONCE AS NEEDED
     Route: 030
  34. PROVENTIL HFA [SALBUTAMOL] [Concomitant]
     Route: 065
  35. VALTREX [Concomitant]
     Active Substance: VALACYCLOVIR HYDROCHLORIDE
     Route: 048
  36. ZOFRAN [Concomitant]
     Active Substance: ONDANSETRON HYDROCHLORIDE
     Dosage: 4MG/2ML
     Route: 048
  37. DUONEB [Concomitant]
     Active Substance: ALBUTEROL SULFATE\IPRATROPIUM BROMIDE
     Indication: WHEEZING
     Dosage: NEBULIZATION, DAILY
     Route: 065
     Dates: start: 20190402
  38. ACETAMINOPHEN. [Concomitant]
     Active Substance: ACETAMINOPHEN
     Indication: PAIN
     Dosage: 2 TABLETS
     Route: 048
  39. AMLODIPINE [Concomitant]
     Active Substance: AMLODIPINE BESYLATE
  40. LOVENOX [Concomitant]
     Active Substance: ENOXAPARIN SODIUM
  41. MUCINEX [Concomitant]
     Active Substance: GUAIFENESIN
     Route: 048
  42. BACTRIM [Concomitant]
     Active Substance: SULFAMETHOXAZOLE\TRIMETHOPRIM
  43. TESSALON [Concomitant]
     Active Substance: BENZONATATE
     Indication: COUGH
     Route: 065
  44. RANITIDINE HCL [Concomitant]
     Active Substance: RANITIDINE HYDROCHLORIDE
     Indication: GASTROOESOPHAGEAL REFLUX DISEASE
     Route: 048
  45. VENETOCLAX. [Suspect]
     Active Substance: VENETOCLAX
     Indication: B-CELL LYMPHOMA
     Dosage: LAST DOSE PRIOR TO SAE INFECTIONS AND INFESTATIONS-OTHER (RSV BRONCHIOLITIS) 12/DEC/2018?LAST DOSE P
     Route: 048
     Dates: start: 20180719
  46. LANTUS [Concomitant]
     Active Substance: INSULIN GLARGINE
     Dosage: 5 UNITS RECENT DOSE 02/APR/2019
     Route: 058
  47. POTASSIUM CHLORIDE. [Concomitant]
     Active Substance: POTASSIUM CHLORIDE
     Indication: HYPOKALAEMIA
     Route: 048
  48. PLAVIX [Concomitant]
     Active Substance: CLOPIDOGREL BISULFATE
     Route: 048
  49. ROBITUSSIN (GUAIFENESIN) [Concomitant]
     Active Substance: GUAIFENESIN
     Dosage: 100MG/5 ML?AS NEEDED
     Route: 048
     Dates: start: 20190402
  50. NOVOLOG [Concomitant]
     Active Substance: INSULIN ASPART
     Dosage: PEN GIVEN DURING MEALS?DOSE 0 TO 6 UNITS
     Route: 058
  51. TOPROL XL [Concomitant]
     Active Substance: METOPROLOL SUCCINATE
     Dosage: MORNING?24 HOUR TABLET
     Route: 048
  52. ONDANSETRON [Concomitant]
     Active Substance: ONDANSETRON
     Route: 065
  53. OCEAN SALINE NASAL SPRAY [Concomitant]
     Active Substance: SODIUM CHLORIDE
     Dosage: 2 SPRAYS
     Route: 065
  54. ZOFRAN [Concomitant]
     Active Substance: ONDANSETRON HYDROCHLORIDE
     Indication: NAUSEA
     Dosage: 2 TABLETS BY MOUTH ON DAY 3 AND DAY 4?4MG/2ML
     Route: 048
  55. FLONASE [Concomitant]
     Active Substance: FLUTICASONE PROPIONATE
     Indication: NASAL CONGESTION
     Route: 065
  56. NORVASC [Concomitant]
     Active Substance: AMLODIPINE BESYLATE
     Route: 048
     Dates: start: 20190402
  57. DEXTROSE. [Concomitant]
     Active Substance: DEXTROSE
     Dosage: AS NEEDED
     Route: 042
  58. NEUPOGEN [Concomitant]
     Active Substance: FILGRASTIM
     Indication: NEUTROPENIA
     Dosage: DOSE 300 MCG
     Route: 058

REACTIONS (2)
  - Influenza [Recovered/Resolved with Sequelae]
  - Respiratory syncytial virus bronchiolitis [Recovered/Resolved with Sequelae]

NARRATIVE: CASE EVENT DATE: 20190106
